FAERS Safety Report 9969681 (Version 1)
Quarter: 2014Q1

REPORT INFORMATION
  Report Type: Spontaneous
  Country: US (occurrence: None)
  Receive Date: 20140304
  Receipt Date: 20140304
  Transmission Date: 20141002
  Serious: No
  Sender: FDA-Public Use
  Company Number: None

PATIENT
  Age: 10 Year
  Sex: Male
  Weight: 38.56 kg

DRUGS (1)
  1. CEFDINIR [Suspect]
     Indication: SINUSITIS
     Dosage: 1 PILL TWICE DAILY TAKEN BY MOUTH
     Route: 048
     Dates: start: 20140225, end: 20140227

REACTIONS (1)
  - Diarrhoea [None]
